FAERS Safety Report 4724582-5 (Version None)
Quarter: 2005Q3

REPORT INFORMATION
  Report Type: 
  Country: None (occurrence: None)
  Receive Date: 20050726
  Receipt Date: 20050714
  Transmission Date: 20060218
  Serious: Yes (Hospitalization)
  Sender: FDA-Public Use
  Company Number: US-JNJFOC-20040402622

PATIENT
  Sex: Female
  Weight: 74.84 kg

DRUGS (7)
  1. DURAGESIC-100 [Suspect]
     Route: 062
  2. VICODIN [Concomitant]
  3. VICODIN [Concomitant]
     Indication: DRUG USE FOR UNKNOWN INDICATION
  4. ACTIQ [Concomitant]
     Indication: DRUG USE FOR UNKNOWN INDICATION
  5. BUSPIRONE [Concomitant]
  6. ESOMEPRAZOLE [Concomitant]
  7. GABAPENTIN [Concomitant]

REACTIONS (5)
  - DRUG WITHDRAWAL SYNDROME [None]
  - GASTROENTERITIS [None]
  - HYPERTENSION [None]
  - HYPOTHYROIDISM [None]
  - OVERDOSE [None]
